FAERS Safety Report 10067394 (Version 2)
Quarter: 2014Q2

REPORT INFORMATION
  Report Type: Spontaneous
  Country: BR (occurrence: BR)
  Receive Date: 20140409
  Receipt Date: 20140409
  Transmission Date: 20141212
  Serious: Yes (Other)
  Sender: FDA-Public Use
  Company Number: BR-SA-2014SA032434

PATIENT
  Sex: Male

DRUGS (3)
  1. LANTUS [Suspect]
     Indication: DIABETES MELLITUS
     Dosage: STRENGTH: 3ML?DOSE=30 IU IN THE MORNING, 20 IU IN THE AFTERNOON)
     Route: 058
     Dates: start: 2013
  2. LANTUS [Suspect]
     Indication: DIABETES MELLITUS
     Dosage: DOSE=20 IU IN THE MORNING AND 15 IU AT NIGHT
     Route: 058
  3. CLIKSTAR [Concomitant]
     Indication: DEVICE THERAPY

REACTIONS (3)
  - Cerebrovascular accident [Unknown]
  - Hyperglycaemia [Unknown]
  - Hypoglycaemia [Unknown]
